FAERS Safety Report 9797642 (Version 1)
Quarter: 2014Q1

REPORT INFORMATION
  Report Type: Spontaneous
  Country: US (occurrence: US)
  Receive Date: 20140106
  Receipt Date: 20140106
  Transmission Date: 20141002
  Serious: No
  Sender: FDA-Public Use
  Company Number: US-PFIZER INC-2014002498

PATIENT
  Age: 59 Year
  Sex: Female
  Weight: 121.54 kg

DRUGS (6)
  1. LYRICA [Suspect]
     Indication: FIBROMYALGIA
     Dosage: 50 MG, 2X/DAY
     Route: 048
     Dates: start: 200711
  2. LYRICA [Suspect]
     Indication: PAIN
     Dosage: 225 MG (BY TAKING 75MG CAPSULE IN MORNING AND 2 CAPSULES OF 75MG IN NIGHT), IN A DAY
     Route: 048
  3. METOPROLOL [Concomitant]
     Dosage: 50MG IN MORNING AND 25MG IN NIGHT
  4. AMLODIPINE [Concomitant]
     Dosage: 5 MG, 1X/DAY
  5. FUROSEMIDE [Concomitant]
     Dosage: 20 MG, EVERY OTHER DAY
  6. SPIRONOLACTONE [Concomitant]
     Dosage: 25 MG, EVERY OTHER DAY

REACTIONS (2)
  - Swelling [Unknown]
  - Weight increased [Unknown]
